FAERS Safety Report 12272863 (Version 1)
Quarter: 2016Q2

REPORT INFORMATION
  Report Type: Spontaneous
  Country: FR (occurrence: FR)
  Receive Date: 20160415
  Receipt Date: 20160415
  Transmission Date: 20160815
  Serious: Yes (Hospitalization)
  Sender: FDA-Public Use
  Company Number: FR-JNJFOC-20160413276

PATIENT
  Age: 64 Year
  Sex: Male

DRUGS (11)
  1. PROPOFOL. [Suspect]
     Active Substance: PROPOFOL
     Indication: SURGERY
     Route: 042
     Dates: start: 20151207, end: 20151207
  2. PARACETAMOL PANPHARMA [Suspect]
     Active Substance: ACETAMINOPHEN
     Indication: PAIN
     Route: 041
     Dates: start: 20151207, end: 20151214
  3. DEXAMETHASONE SODIUM PHOSPHATE. [Suspect]
     Active Substance: DEXAMETHASONE SODIUM PHOSPHATE
     Indication: SURGERY
     Route: 042
     Dates: start: 20151207, end: 20151207
  4. DROLEPTAN [Suspect]
     Active Substance: DROPERIDOL
     Indication: SURGERY
     Route: 042
     Dates: start: 20151207, end: 20151207
  5. SUFENTANIL CITRATE. [Suspect]
     Active Substance: SUFENTANIL CITRATE
     Indication: SURGERY
     Route: 042
     Dates: start: 20151207, end: 20151207
  6. AMOXICILLIN AND CLAVULANATE POTASSIUM [Suspect]
     Active Substance: AMOXICILLIN\CLAVULANATE POTASSIUM
     Indication: PROPHYLAXIS
     Route: 042
     Dates: start: 20151207, end: 20151207
  7. CONTRAMAL [Suspect]
     Active Substance: TRAMADOL HYDROCHLORIDE
     Indication: PAIN
     Route: 065
     Dates: start: 20151207, end: 20151214
  8. SEVOFLURANE. [Suspect]
     Active Substance: SEVOFLURANE
     Indication: SURGERY
     Route: 055
     Dates: start: 20151207, end: 20151207
  9. EPHEDRINE AGUETTANT [Suspect]
     Active Substance: EPHEDRINE
     Indication: SURGERY
     Route: 041
     Dates: start: 20151207, end: 20151207
  10. HYPNOMIDAT [Suspect]
     Active Substance: ETOMIDATE SULFATE
     Indication: SURGERY
     Route: 042
     Dates: start: 20151207, end: 20151207
  11. ATRACURIUM HOSPIRA [Suspect]
     Active Substance: ATRACURIUM
     Indication: SURGERY
     Route: 042
     Dates: start: 20151207, end: 20151207

REACTIONS (1)
  - Acute kidney injury [Recovering/Resolving]

NARRATIVE: CASE EVENT DATE: 20151208
